FAERS Safety Report 6205837-4 (Version None)
Quarter: 2009Q2

REPORT INFORMATION
  Report Type: 
  Country: None (occurrence: None)
  Receive Date: 20090527
  Receipt Date: 20090505
  Transmission Date: 20091009
  Serious: No
  Sender: FDA-Public Use
  Company Number: US-ABBOTT-09P-163-0571493-00

PATIENT
  Sex: Male
  Weight: 86.26 kg

DRUGS (5)
  1. SIMCOR [Suspect]
     Indication: BLOOD CHOLESTEROL INCREASED
     Dosage: 500/20 MG
     Dates: start: 20090401, end: 20090501
  2. SIMCOR [Suspect]
     Dates: start: 20090501
  3. FLOMAX [Concomitant]
     Indication: DRUG USE FOR UNKNOWN INDICATION
  4. INDERAL [Concomitant]
     Indication: DRUG USE FOR UNKNOWN INDICATION
  5. LEVOTHYROXINE SODIUM [Concomitant]
     Indication: DRUG USE FOR UNKNOWN INDICATION
     Dates: start: 19690101

REACTIONS (4)
  - ABDOMINAL DISCOMFORT [None]
  - MUSCLE SPASMS [None]
  - PRURITUS [None]
  - RASH [None]
